FAERS Safety Report 9912795 (Version 1)
Quarter: 2014Q1

REPORT INFORMATION
  Report Type: Spontaneous
  Country: US (occurrence: US)
  Receive Date: 20140220
  Receipt Date: 20140220
  Transmission Date: 20141002
  Serious: No
  Sender: FDA-Public Use
  Company Number: US-PFIZER INC-2014047480

PATIENT
  Age: 30 Year
  Sex: Female

DRUGS (7)
  1. LYRICA [Suspect]
     Dosage: 50 MG, 2X/DAY
     Route: 048
  2. TYLENOL# 3 [Concomitant]
     Indication: PAIN
     Dosage: 300-30 MG PER TABLET 1-2 TABLETS EVERY 6 HOURS AS NEEDED
     Route: 048
     Dates: start: 20131022, end: 20140211
  3. FLEXERIL [Concomitant]
     Dosage: 10 MG NIGHTLY AS NEEDED
     Route: 048
  4. TAPAZOLE [Concomitant]
     Dosage: 20 MG NIGHTLY
     Route: 048
  5. TOPROL XL [Concomitant]
     Dosage: 50 MG, 1X/DAY
     Route: 048
     Dates: end: 20140211
  6. PRILOSEC [Concomitant]
     Dosage: 20 MG, DAILY (EVERY MORNING BEFORE BREAKFAST, TAKE ON AN EMPTY STOMACH)
     Route: 048
     Dates: end: 20140211
  7. LIDOCAINE HYDROCHLORIDE/TRIAMCINOLONE ACETONIDE [Concomitant]
     Dosage: [LIDOCAINE 10 MG/ML (1%) 0.25 ML]/[TRIAMCINOLONE ACETONIDE 4.8 MG] ONCE
     Route: 030
     Dates: start: 20140211, end: 20140211

REACTIONS (1)
  - Pain [Unknown]
